FAERS Safety Report 9311699 (Version 2)
Quarter: 2013Q2

REPORT INFORMATION
  Report Type: Spontaneous
  Country: JP (occurrence: JP)
  Receive Date: 20130528
  Receipt Date: 20130606
  Transmission Date: 20140414
  Serious: Yes (Death)
  Sender: FDA-Public Use
  Company Number: JP-BAYER-2013-063784

PATIENT
  Age: 68 Year
  Sex: Male

DRUGS (3)
  1. BAYASPIRIN [Suspect]
     Indication: MALIGNANT ATROPHIC PAPULOSIS
     Dosage: UNK
     Route: 048
     Dates: start: 2012
  2. PREDNISOLONE [Concomitant]
  3. DIPYRIDAMOLE [Concomitant]
     Indication: MALIGNANT ATROPHIC PAPULOSIS
     Dosage: UNK
     Dates: start: 2012

REACTIONS (1)
  - Small intestinal perforation [Fatal]
